FAERS Safety Report 8220489-X (Version None)
Quarter: 2012Q1

REPORT INFORMATION
  Report Type: 
  Country: None (occurrence: None)
  Receive Date: 20120320
  Receipt Date: 20120308
  Transmission Date: 20120608
  Serious: Yes (Hospitalization)
  Sender: FDA-Public Use
  Company Number: US-BAYER-2012-023594

PATIENT
  Age: 19 Year
  Sex: Female
  Weight: 61.224 kg

DRUGS (2)
  1. YAZ [Suspect]
  2. DROSPIRENONE AND ETHINYL ESTRADIOL [Suspect]

REACTIONS (1)
  - RETINAL ARTERY OCCLUSION [None]
